FAERS Safety Report 8005688-4 (Version None)
Quarter: 2011Q4

REPORT INFORMATION
  Report Type: 
  Country: None (occurrence: None)
  Receive Date: 20111223
  Receipt Date: 20111115
  Transmission Date: 20120403
  Serious: Yes (Other)
  Sender: FDA-Public Use
  Company Number: US-ROCHE-793122

PATIENT
  Sex: Female
  Weight: 56.75 kg

DRUGS (10)
  1. ACCUTANE [Suspect]
  2. DUAC [Concomitant]
     Indication: ACNE
  3. MARIJUANA [Concomitant]
     Dates: start: 20020801, end: 20020901
  4. NUVARING [Concomitant]
     Indication: CONTRACEPTION
  5. BENZOYL PEROXIDE [Concomitant]
     Indication: ACNE
  6. ACCUTANE [Suspect]
     Indication: ACNE
  7. ACCUTANE [Suspect]
     Dates: start: 19990101, end: 20001231
  8. RETIN-A [Concomitant]
     Indication: ACNE
  9. BREVICON 21 [Concomitant]
     Indication: CONTRACEPTION
  10. TAZORAC [Concomitant]
     Indication: ACNE

REACTIONS (4)
  - INFLAMMATORY BOWEL DISEASE [None]
  - INTESTINAL HAEMORRHAGE [None]
  - IRRITABLE BOWEL SYNDROME [None]
  - COLITIS ULCERATIVE [None]
